FAERS Safety Report 8609929 (Version 6)
Quarter: 2013Q2

REPORT INFORMATION
  Report Type: Report from Study
  Country: BE (occurrence: BE)
  Receive Date: 20120612
  Receipt Date: 20130523
  Transmission Date: 20140414
  Serious: Yes (Hospitalization, Other)
  Sender: FDA-Public Use
  Company Number: BE-CELGENEUS-013-21880-12053349

PATIENT
  Age: 73 Year
  Sex: Female
  Weight: 70.5 kg

DRUGS (48)
  1. REVLIMID [Suspect]
     Indication: PLASMA CELL MYELOMA
     Dosage: 25 MILLIGRAM
     Route: 048
     Dates: start: 20110105, end: 20110202
  2. REVLIMID [Suspect]
     Dosage: 25 MILLIGRAM
     Route: 048
     Dates: start: 20110203, end: 20110323
  3. REVLIMID [Suspect]
     Dosage: 15 MILLIGRAM
     Route: 048
     Dates: start: 20110428, end: 20110519
  4. REVLIMID [Suspect]
     Dosage: 10 MILLIGRAM
     Route: 048
     Dates: start: 20110624, end: 20110713
  5. REVLIMID [Suspect]
     Dosage: 15 MILLIGRAM
     Route: 048
     Dates: start: 20120105, end: 20120125
  6. REVLIMID [Suspect]
     Dosage: 25 MILLIGRAM
     Route: 048
     Dates: start: 20120202
  7. REVLIMID [Suspect]
     Dosage: 25 MILLIGRAM
     Route: 048
     Dates: start: 20120426, end: 20120516
  8. REVLIMID [Suspect]
     Dosage: 25 MILLIGRAM
     Route: 048
     Dates: start: 20120531, end: 20120621
  9. REVLIMID [Suspect]
     Dosage: 10 MILLIGRAM
     Route: 048
     Dates: start: 20120530, end: 20120627
  10. REVLIMID [Suspect]
     Dosage: 25 MILLIGRAM
     Route: 048
     Dates: start: 20110331, end: 20110420
  11. REVLIMID [Suspect]
     Dosage: 15 MILLIGRAM
     Route: 048
     Dates: start: 20110527, end: 20110616
  12. THALIDOMIDE [Suspect]
     Indication: PLASMA CELL MYELOMA
     Dosage: DOSE NOT PROVIDED
     Route: 048
     Dates: start: 200803, end: 200808
  13. THALIDOMIDE [Suspect]
     Dosage: DOSE NOT PROVIDED
     Route: 048
     Dates: start: 200808, end: 200812
  14. THALIDOMIDE [Suspect]
     Dosage: DOSE NOT PROVIDED
     Route: 048
     Dates: start: 200812, end: 200905
  15. DEXAMETHASONE [Suspect]
     Indication: PLASMA CELL MYELOMA
     Route: 048
     Dates: start: 20110105, end: 20110330
  16. DEXAMETHASONE [Suspect]
     Route: 048
     Dates: start: 20110624, end: 20110720
  17. DEXAMETHASONE [Suspect]
     Dosage: 20 MILLIGRAM
     Route: 048
     Dates: start: 20120426, end: 20120621
  18. DEXAMETHASONE [Suspect]
     Route: 065
     Dates: start: 20120702
  19. DEXAMETHASONE [Suspect]
     Route: 065
     Dates: start: 20120703
  20. DEXAMETHASONE [Suspect]
     Route: 065
     Dates: start: 20120704
  21. DEXAMETHASONE [Suspect]
     Dosage: 2.8571 MILLIGRAM
     Route: 048
     Dates: start: 20120531
  22. DEXAMETHASONE [Suspect]
     Dosage: 2.8571 MILLIGRAM
     Route: 048
     Dates: end: 20120627
  23. DEXAMETHASONE [Suspect]
     Route: 048
     Dates: start: 20110624, end: 20110720
  24. DEXAMETHASONE [Suspect]
     Route: 048
     Dates: start: 20120531, end: 20120621
  25. SYMBICORT [Concomitant]
     Indication: COUGH
     Dosage: 4 DOSAGE FORMS
     Route: 055
     Dates: start: 201205, end: 201205
  26. ASAFLOW [Concomitant]
     Indication: THROMBOSIS
     Dosage: 80 GRAM
     Route: 041
     Dates: start: 20110105
  27. ASAFLOW [Concomitant]
     Indication: PYREXIA
     Dosage: 80 MILLIGRAM
     Route: 048
     Dates: start: 20120718, end: 20120718
  28. ASAFLOW [Concomitant]
     Route: 065
  29. CRANBERRY EXTRACT [Concomitant]
     Indication: PRODUCT USED FOR UNKNOWN INDICATION
     Route: 065
     Dates: start: 20110301
  30. BISOPROLOL [Concomitant]
     Indication: PRODUCT USED FOR UNKNOWN INDICATION
     Route: 065
     Dates: start: 2006
  31. R CALM CREME [Concomitant]
     Indication: PRODUCT USED FOR UNKNOWN INDICATION
     Route: 065
     Dates: start: 20120213
  32. FLEXIUM [Concomitant]
     Indication: PRODUCT USED FOR UNKNOWN INDICATION
     Route: 065
     Dates: start: 20120213
  33. FLEXIUM [Concomitant]
     Route: 065
     Dates: start: 20101002, end: 20111102
  34. RED BLOOD CELLS [Concomitant]
     Indication: PRODUCT USED FOR UNKNOWN INDICATION
     Route: 065
     Dates: start: 20111018
  35. RED BLOOD CELLS [Concomitant]
     Indication: ANAEMIA
     Dosage: 1
     Route: 041
     Dates: start: 20120717, end: 20120717
  36. PLATELETS [Concomitant]
     Indication: PRODUCT USED FOR UNKNOWN INDICATION
     Route: 065
     Dates: start: 20120327
  37. PLATELETS [Concomitant]
     Indication: THROMBOCYTOPENIA
     Route: 041
     Dates: start: 20120717, end: 20120719
  38. MERONEM [Concomitant]
     Indication: PRODUCT USED FOR UNKNOWN INDICATION
     Route: 065
     Dates: start: 20120419, end: 20120430
  39. CETAVLEX [Concomitant]
     Indication: PRODUCT USED FOR UNKNOWN INDICATION
     Route: 065
     Dates: start: 20120417
  40. FORLAX [Concomitant]
     Indication: PRODUCT USED FOR UNKNOWN INDICATION
     Route: 065
     Dates: start: 20120430
  41. PANTOMED [Concomitant]
     Indication: PRODUCT USED FOR UNKNOWN INDICATION
     Route: 065
     Dates: start: 20120418
  42. NACL [Concomitant]
     Indication: PRODUCT USED FOR UNKNOWN INDICATION
     Route: 065
     Dates: start: 20120709
  43. BLOOD [Concomitant]
     Indication: PANCYTOPENIA
     Route: 065
  44. PARACODEINE [Concomitant]
     Indication: PAIN
     Dosage: .5 MILLIGRAM
     Route: 048
     Dates: start: 20120718, end: 20120719
  45. PARACODEINE [Concomitant]
     Indication: PYREXIA
     Dosage: 1 MILLIGRAM
     Route: 048
     Dates: start: 20120717, end: 20120718
  46. DUOVENT [Concomitant]
     Indication: COUGH
     Dosage: 1 OTHER
     Dates: start: 201205, end: 20120718
  47. EXACYL [Concomitant]
     Indication: HAEMOPTYSIS
     Dosage: 2000 MILLIGRAM
     Route: 041
     Dates: start: 20120717, end: 20120719
  48. ASPIRINE [Concomitant]
     Indication: THROMBOSIS PROPHYLAXIS
     Route: 065

REACTIONS (6)
  - Squamous cell carcinoma of lung [Not Recovered/Not Resolved]
  - Pyrexia [Recovered/Resolved]
  - Febrile neutropenia [Recovered/Resolved]
  - Leukopenia [Recovered/Resolved]
  - Anaemia [Recovered/Resolved]
  - Thrombocytopenia [Recovered/Resolved]
